FAERS Safety Report 14820014 (Version 1)
Quarter: 2018Q2

REPORT INFORMATION
  Report Type: Spontaneous
  Country: US (occurrence: US)
  Receive Date: 20180417
  Receipt Date: 20180417
  Transmission Date: 20180711
  Serious: Yes (Life-Threatening, Hospitalization, Disabling)
  Sender: FDA-Public Use
  Company Number: None

PATIENT
  Age: 55 Year
  Sex: Female
  Weight: 193.5 kg

DRUGS (10)
  1. MULTIVITAMIN [Concomitant]
     Active Substance: VITAMINS
  2. TORSEMIDE. [Concomitant]
     Active Substance: TORSEMIDE
  3. PRAMIPEXOLE. [Suspect]
     Active Substance: PRAMIPEXOLE
     Indication: PARKINSON^S DISEASE
     Dosage: ?          QUANTITY:1 TABLET(S);?
     Route: 048
     Dates: start: 20050905, end: 20180215
  4. CLONAZEPAM. [Concomitant]
     Active Substance: CLONAZEPAM
  5. VITAMIN D [Concomitant]
     Active Substance: CHOLECALCIFEROL
  6. VITAMIN C [Concomitant]
     Active Substance: ASCORBIC ACID
  7. BACLOFEN. [Concomitant]
     Active Substance: BACLOFEN
  8. LEVOTHYROXINE. [Concomitant]
     Active Substance: LEVOTHYROXINE
  9. SPIRONALACTONE [Concomitant]
     Active Substance: SPIRONOLACTONE
  10. TRAZEDONE [Concomitant]

REACTIONS (9)
  - Multiple fractures [None]
  - Tooth fracture [None]
  - Oedema [None]
  - Sleep apnoea syndrome [None]
  - Sleep attacks [None]
  - Haematochezia [None]
  - Multiple sclerosis [None]
  - Gingival bleeding [None]
  - Pain [None]

NARRATIVE: CASE EVENT DATE: 20050905
